FAERS Safety Report 15751301 (Version 1)
Quarter: 2018Q4

REPORT INFORMATION
  Report Type: Other
  Country: SE (occurrence: SE)
  Receive Date: 20181221
  Receipt Date: 20181221
  Transmission Date: 20190205
  Serious: Yes (Other)
  Sender: FDA-Public Use
  Company Number: SE-GE HEALTHCARE LIFE SCIENCES-2018CSU005168

PATIENT

DRUGS (2)
  1. OMNIPAQUE [Suspect]
     Active Substance: IOHEXOL
     Indication: X-RAY
     Dosage: 350 MG/ML 25 ML
     Route: 042
  2. OMNIPAQUE [Suspect]
     Active Substance: IOHEXOL
     Indication: PRODUCT USED FOR UNKNOWN INDICATION

REACTIONS (7)
  - Obstructive airways disorder [Unknown]
  - Pallor [Unknown]
  - Cyanosis [Unknown]
  - Tachycardia [Unknown]
  - Nausea [Unknown]
  - Ocular hyperaemia [Unknown]
  - Cough [Unknown]

NARRATIVE: CASE EVENT DATE: 20181128
